FAERS Safety Report 5765016-1 (Version None)
Quarter: 2008Q2

REPORT INFORMATION
  Report Type: 
  Country: None (occurrence: None)
  Receive Date: 20080611
  Receipt Date: 20080528
  Transmission Date: 20081010
  Serious: Yes (Hospitalization)
  Sender: FDA-Public Use
  Company Number: US-ELI_LILLY_AND_COMPANY-US200805005943

PATIENT
  Sex: Female

DRUGS (8)
  1. HUMULIN N [Suspect]
     Dosage: UNK, UNK
     Dates: start: 19960101
  2. NOVOLOG [Concomitant]
  3. ATACAND [Concomitant]
  4. HYDROCHLOROTHIAZIDE [Concomitant]
  5. WARFARIN SODIUM [Concomitant]
  6. TOPROL-XL [Concomitant]
  7. ZOLOFT [Concomitant]
  8. NEXIUM [Concomitant]

REACTIONS (5)
  - FALL [None]
  - INTERVERTEBRAL DISC PROTRUSION [None]
  - PSORIASIS [None]
  - SHOULDER OPERATION [None]
  - UPPER LIMB FRACTURE [None]
